FAERS Safety Report 17120031 (Version 1)
Quarter: 2019Q4

REPORT INFORMATION
  Report Type: Report from Study
  Country: IT (occurrence: IT)
  Receive Date: 20191206
  Receipt Date: 20191206
  Transmission Date: 20200122
  Serious: Yes (Other)
  Sender: FDA-Public Use
  Company Number: PHHY2016IT002114

PATIENT
  Age: 34 Year
  Sex: Female

DRUGS (1)
  1. GILENYA [Suspect]
     Active Substance: FINGOLIMOD HYDROCHLORIDE
     Indication: MULTIPLE SCLEROSIS
     Dosage: UNK, QD
     Route: 048
     Dates: start: 20130116

REACTIONS (9)
  - White blood cell count decreased [Unknown]
  - Lymphocyte count decreased [Unknown]
  - Neutrophil count increased [Unknown]
  - Vulvovaginal candidiasis [Unknown]
  - Tinnitus [Unknown]
  - Mycoplasma infection [Unknown]
  - Candida infection [Recovered/Resolved]
  - Vulvovaginal candidiasis [Recovered/Resolved]
  - Pneumonia [Unknown]

NARRATIVE: CASE EVENT DATE: 20130204
